FAERS Safety Report 7979199-6 (Version None)
Quarter: 2011Q4

REPORT INFORMATION
  Report Type: 
  Country: None (occurrence: None)
  Receive Date: 20111214
  Receipt Date: 20111205
  Transmission Date: 20120403
  Serious: Yes (Hospitalization)
  Sender: FDA-Public Use
  Company Number: JP-B.I. PHARMACEUTICALS,INC./RIDGEFIELD-2011-BP-26463NB

PATIENT
  Sex: Male
  Weight: 62 kg

DRUGS (3)
  1. PRADAXA [Suspect]
     Indication: ANTICOAGULANT THERAPY
     Dosage: 300 MG
     Route: 048
     Dates: start: 20111031, end: 20111112
  2. TAMBOCOR [Concomitant]
     Dosage: 100 MG
     Route: 048
     Dates: start: 20111024
  3. BISOPROLOL FUMARATE [Concomitant]
     Dosage: 2.5 MG
     Route: 048
     Dates: start: 20111024

REACTIONS (3)
  - PULMONARY EMBOLISM [None]
  - DEEP VEIN THROMBOSIS [None]
  - HAEMORRHAGE SUBCUTANEOUS [None]
